FAERS Safety Report 25119749 (Version 1)
Quarter: 2025Q1

REPORT INFORMATION
  Report Type: Spontaneous
  Country: IT (occurrence: IT)
  Receive Date: 20250325
  Receipt Date: 20250325
  Transmission Date: 20250408
  Serious: Yes (Other)
  Sender: AMGEN
  Company Number: IT-AMGEN-ITASP2025053444

PATIENT

DRUGS (11)
  1. APREMILAST [Suspect]
     Active Substance: APREMILAST
     Indication: Psoriasis
     Route: 065
  2. ADALIMUMAB [Suspect]
     Active Substance: ADALIMUMAB
     Indication: Psoriasis
     Route: 065
  3. ETANERCEPT [Suspect]
     Active Substance: ETANERCEPT
     Indication: Psoriasis
     Route: 065
  4. INFLIXIMAB [Suspect]
     Active Substance: INFLIXIMAB
     Indication: Psoriasis
     Route: 065
  5. SECUKINUMAB [Suspect]
     Active Substance: SECUKINUMAB
     Indication: Psoriasis
     Route: 065
  6. IXEKIZUMAB [Suspect]
     Active Substance: IXEKIZUMAB
     Indication: Psoriasis
     Route: 065
  7. GUSELKUMAB [Suspect]
     Active Substance: GUSELKUMAB
     Indication: Psoriasis
     Route: 065
  8. TILDRAKIZUMAB [Suspect]
     Active Substance: TILDRAKIZUMAB
     Indication: Psoriasis
     Route: 065
  9. RISANKIZUMAB [Suspect]
     Active Substance: RISANKIZUMAB
     Indication: Psoriasis
     Route: 065
  10. BIMEKIZUMAB [Suspect]
     Active Substance: BIMEKIZUMAB
     Indication: Psoriasis
     Route: 065
  11. BRODALUMAB [Suspect]
     Active Substance: BRODALUMAB
     Indication: Psoriasis
     Dosage: 210 MILLIGRAM, Q2WK
     Route: 058

REACTIONS (17)
  - Colitis [Unknown]
  - Epilepsy [Unknown]
  - Psoriatic arthropathy [Unknown]
  - Leukoplakia oral [Unknown]
  - Oral candidiasis [Unknown]
  - Hypotension [Unknown]
  - Erythema [Unknown]
  - Latent tuberculosis [Unknown]
  - Conjunctivitis [Unknown]
  - Hepatic steatosis [Unknown]
  - Oedema peripheral [Unknown]
  - Rash maculo-papular [Unknown]
  - Fatigue [Unknown]
  - Treatment failure [Unknown]
  - Antinuclear antibody positive [Unknown]
  - Arthropathy [Unknown]
  - Unevaluable event [Unknown]
